FAERS Safety Report 8192891-6 (Version None)
Quarter: 2012Q1

REPORT INFORMATION
  Report Type: 
  Country: None (occurrence: None)
  Receive Date: 20120308
  Receipt Date: 20120229
  Transmission Date: 20120608
  Serious: Yes (Hospitalization)
  Sender: FDA-Public Use
  Company Number: JP-JNJFOC-20111203062

PATIENT
  Age: 26 Year
  Sex: Male
  Weight: 60 kg

DRUGS (6)
  1. PREDNISOLONE [Suspect]
     Indication: PRODUCT USED FOR UNKNOWN INDICATION
     Route: 048
     Dates: start: 20110701
  2. REMICADE [Suspect]
     Route: 042
  3. MESALAMINE [Concomitant]
     Route: 048
     Dates: start: 20110701
  4. METHOTREXATE [Suspect]
     Indication: PRODUCT USED FOR UNKNOWN INDICATION
     Route: 048
     Dates: start: 20070201, end: 20110708
  5. REMICADE [Suspect]
     Indication: CROHN'S DISEASE
     Route: 042
     Dates: start: 20110729
  6. HUMIRA [Suspect]
     Indication: PRODUCT USED FOR UNKNOWN INDICATION
     Route: 058
     Dates: start: 20070201, end: 20110601

REACTIONS (6)
  - FUNGAEMIA [None]
  - CROHN'S DISEASE [None]
  - PNEUMONIA [None]
  - PELVIC ABSCESS [None]
  - PYREXIA [None]
  - GASTROINTESTINAL PERFORATION [None]
